FAERS Safety Report 5811427-5 (Version None)
Quarter: 2008Q3

REPORT INFORMATION
  Report Type: 
  Country: None (occurrence: None)
  Receive Date: 20080715
  Receipt Date: 20080715
  Transmission Date: 20090109
  Serious: Yes (Hospitalization)
  Sender: FDA-Public Use
  Company Number: None

PATIENT
  Sex: Male
  Weight: 102 kg

DRUGS (10)
  1. IMMUNE GLOBULIN (HUMAN) [Suspect]
     Indication: POLYNEUROPATHY
     Dosage: 40 G Q24H IV
     Route: 042
     Dates: start: 20080630
  2. ASPIRIN [Concomitant]
  3. AZATHIOPRINE SODIUM [Concomitant]
  4. BYETTA [Concomitant]
  5. CLONIDINE [Concomitant]
  6. CRESTOR [Concomitant]
  7. DEXTROSE [Concomitant]
  8. FENOFIBRATE [Concomitant]
  9. GLYBURIDE [Concomitant]
  10. METFORMIN [Concomitant]

REACTIONS (1)
  - DRUG INEFFECTIVE [None]
